FAERS Safety Report 11128769 (Version 1)
Quarter: 2015Q2

REPORT INFORMATION
  Report Type: Report from Study
  Country: DE (occurrence: DE)
  Receive Date: 20150521
  Receipt Date: 20150521
  Transmission Date: 20150821
  Serious: Yes (Hospitalization)
  Sender: FDA-Public Use
  Company Number: DE-ABBVIE-15K-062-1393925-00

PATIENT
  Sex: Female

DRUGS (1)
  1. DUODOPA [Suspect]
     Active Substance: CARBIDOPA\LEVODOPA
     Indication: PARKINSON^S DISEASE
     Dosage: MD6.5ML, CRD 6.0ML/H, CRN 5.4ML/H, ED 1.5ML
     Route: 050
     Dates: start: 20130719

REACTIONS (1)
  - Rehabilitation therapy [Not Recovered/Not Resolved]
